FAERS Safety Report 20042376 (Version 2)
Quarter: 2021Q4

REPORT INFORMATION
  Report Type: Spontaneous
  Country: US (occurrence: US)
  Receive Date: 20211108
  Receipt Date: 20211111
  Transmission Date: 20220303
  Serious: Yes (Hospitalization, Other)
  Sender: FDA-Public Use
  Company Number: US-APOTEX-2021AP045173

PATIENT
  Age: 51 Year
  Sex: Male

DRUGS (2)
  1. FLUTICASONE PROPIONATE [Interacting]
     Active Substance: FLUTICASONE PROPIONATE
     Indication: Sinusitis
     Dosage: UNK
     Route: 045
  2. RITONAVIR [Interacting]
     Active Substance: RITONAVIR
     Indication: HIV infection
     Dosage: UNK
     Route: 065

REACTIONS (3)
  - Osteonecrosis [Recovered/Resolved]
  - Cushing^s syndrome [Recovered/Resolved]
  - Drug interaction [Recovered/Resolved]
